FAERS Safety Report 10708641 (Version 1)
Quarter: 2015Q1

REPORT INFORMATION
  Report Type: Spontaneous
  Country: US (occurrence: US)
  Receive Date: 20150113
  Receipt Date: 20150113
  Transmission Date: 20150721
  Serious: Yes (Death, Other)
  Sender: FDA-Public Use
  Company Number: US-GLAXOSMITHKLINE-US2015GSK002008

PATIENT
  Age: 29 Year
  Sex: Male

DRUGS (2)
  1. FLUOXETINE [Suspect]
     Active Substance: FLUOXETINE\FLUOXETINE HYDROCHLORIDE
     Route: 065
  2. BUPROPION [Suspect]
     Active Substance: BUPROPION
     Route: 065

REACTIONS (3)
  - Overdose [Unknown]
  - Cardio-respiratory arrest [Unknown]
  - Death [Fatal]
